FAERS Safety Report 4599287-4 (Version None)
Quarter: 2005Q1

REPORT INFORMATION
  Report Type: 
  Country: None (occurrence: None)
  Receive Date: 20050302
  Receipt Date: 20050302
  Transmission Date: 20050727
  Serious: No
  Sender: FDA-Public Use
  Company Number: None

PATIENT
  Age: 54 Year
  Sex: Female

DRUGS (4)
  1. DILTIAZEM [Suspect]
     Indication: HYPERTENSION
     Dosage: ONE DAILY
  2. TOPROL-XL [Concomitant]
  3. POTASSIUM CHLORIDE XR [Concomitant]
  4. HYDROCHLOROTHIAZIDE [Concomitant]

REACTIONS (3)
  - ASTHENIA [None]
  - HEART RATE INCREASED [None]
  - PHARMACEUTICAL PRODUCT COMPLAINT [None]
